FAERS Safety Report 10686782 (Version 1)
Quarter: 2015Q1

REPORT INFORMATION
  Report Type: Report from Study
  Country: CO (occurrence: CO)
  Receive Date: 20150101
  Receipt Date: 20150101
  Transmission Date: 20150720
  Serious: Yes (Death)
  Sender: FDA-Public Use
  Company Number: CO-ABBVIE-14K-036-1327672-00

PATIENT
  Age: 74 Year
  Sex: Female

DRUGS (1)
  1. ZEMPLAR [Suspect]
     Active Substance: PARICALCITOL
     Indication: HYPERPARATHYROIDISM SECONDARY
     Route: 048
     Dates: start: 20140716, end: 20141001

REACTIONS (1)
  - Death [Fatal]

NARRATIVE: CASE EVENT DATE: 20141218
